FAERS Safety Report 7428779-5 (Version None)
Quarter: 2011Q2

REPORT INFORMATION
  Report Type: 
  Country: None (occurrence: None)
  Receive Date: 20110413
  Receipt Date: 20110331
  Transmission Date: 20111010
  Serious: Yes (Life-Threatening, Hospitalization)
  Sender: FDA-Public Use
  Company Number: CAP10000437

PATIENT
  Sex: Female

DRUGS (7)
  1. PREMARIN [Concomitant]
  2. ASA (ACETLYSALICYLIC ACID) [Concomitant]
  3. CARDIZEM /004489701/ [Concomitant]
  4. ZOCOR [Concomitant]
  5. ATACAND [Concomitant]
  6. HYDROCHLOROTHIAZIDE [Concomitant]
  7. MACROBID [Suspect]
     Indication: URINARY TRACT INFECTION
     Dosage: 100 MG TWICE DAILY, ORAL
     Route: 048
     Dates: start: 20100413, end: 20100419

REACTIONS (5)
  - EMPHYSEMA [None]
  - PULMONARY OEDEMA [None]
  - DYSPNOEA [None]
  - CHOKING [None]
  - FATIGUE [None]
